FAERS Safety Report 13965142 (Version 1)
Quarter: 2017Q3

REPORT INFORMATION
  Report Type: Spontaneous
  Country: GB (occurrence: GB)
  Receive Date: 20170913
  Receipt Date: 20170913
  Transmission Date: 20171128
  Serious: Yes (Hospitalization)
  Sender: FDA-Public Use
  Company Number: GB-TEVA-804192ACC

PATIENT
  Age: 89 Year
  Sex: Female

DRUGS (2)
  1. GTN [Concomitant]
     Active Substance: NITROGLYCERIN
     Route: 060
     Dates: start: 20170719
  2. ISOSORBIDE MONONITRATE. [Suspect]
     Active Substance: ISOSORBIDE MONONITRATE
     Dosage: 25 MILLIGRAM DAILY;
     Dates: start: 20170720

REACTIONS (3)
  - Incorrect product formulation administered [Unknown]
  - Hypotension [Unknown]
  - Circulatory collapse [Unknown]
